FAERS Safety Report 5521117-4 (Version None)
Quarter: 2007Q4

REPORT INFORMATION
  Report Type: 
  Country: None (occurrence: None)
  Receive Date: 20071119
  Receipt Date: 20070906
  Transmission Date: 20080405
  Serious: Yes (Hospitalization)
  Sender: FDA-Public Use
  Company Number: US-ASTRAZENECA-2007UW04070

PATIENT
  Age: 31 Year
  Sex: Female
  Weight: 81.8 kg

DRUGS (5)
  1. SEROQUEL [Suspect]
     Indication: BIPOLAR DISORDER
     Dosage: 100MG-400MG
     Route: 048
     Dates: start: 20030101, end: 20050101
  2. RISPERDAL [Suspect]
     Indication: BIPOLAR DISORDER
     Dates: start: 20050101, end: 20050101
  3. ABILIFY [Concomitant]
     Dates: start: 20050101, end: 20060101
  4. GEODON [Concomitant]
     Dates: start: 20060101
  5. THORAZINE [Concomitant]

REACTIONS (3)
  - DIABETES MELLITUS [None]
  - HYPOTENSION [None]
  - OVERDOSE [None]
